FAERS Safety Report 7350622-3 (Version None)
Quarter: 2011Q1

REPORT INFORMATION
  Report Type: 
  Country: None (occurrence: None)
  Receive Date: 20110314
  Receipt Date: 20100806
  Transmission Date: 20110831
  Serious: Yes (Hospitalization, Other)
  Sender: FDA-Public Use
  Company Number: US-BAYER-200936817NA

PATIENT
  Sex: Female
  Weight: 77.273 kg

DRUGS (14)
  1. CIPRO [Concomitant]
     Route: 065
  2. FLUCONAZOLE [Concomitant]
  3. TYLENOL REGULAR [Concomitant]
     Route: 065
  4. VICODIN [Concomitant]
     Route: 065
  5. PEPCID AC [Concomitant]
  6. OCELLA [Suspect]
     Dates: start: 20080701, end: 20090801
  7. IRON SULFATETHIAMIN COMPOUND TAB [Concomitant]
     Route: 065
  8. WARFARIN [Concomitant]
     Route: 065
  9. LOVENOX [Concomitant]
  10. YAZ [Suspect]
     Route: 048
     Dates: start: 20080101
  11. HYDROCODONE BITARTRATE AND ACETAMINOPHEN [Concomitant]
  12. YASMIN [Suspect]
     Route: 048
  13. LEVOTHYROXINE [Concomitant]
     Route: 065
  14. ALPRAZOLAM [Concomitant]

REACTIONS (9)
  - PAIN IN EXTREMITY [None]
  - DYSPNOEA [None]
  - PULMONARY INFARCTION [None]
  - PYREXIA [None]
  - DEEP VEIN THROMBOSIS [None]
  - ARTHRALGIA [None]
  - PULMONARY EMBOLISM [None]
  - FATIGUE [None]
  - THROMBOPHLEBITIS SUPERFICIAL [None]
